FAERS Safety Report 11454892 (Version 1)
Quarter: 2015Q3

REPORT INFORMATION
  Report Type: Spontaneous
  Country: US (occurrence: US)
  Receive Date: 20150831
  Receipt Date: 20150831
  Transmission Date: 20151125
  Serious: No
  Sender: FDA-Public Use
  Company Number: US-ELI_LILLY_AND_COMPANY-US201005005847

PATIENT
  Age: 65 Year
  Sex: Male

DRUGS (1)
  1. CYMBALTA [Suspect]
     Active Substance: DULOXETINE HYDROCHLORIDE
     Indication: OBSESSIVE-COMPULSIVE DISORDER
     Dosage: 30 MG, UNK

REACTIONS (5)
  - Abnormal dreams [Unknown]
  - Off label use [Unknown]
  - Somnambulism [Unknown]
  - Poor quality sleep [Unknown]
  - Sleep disorder [Unknown]
